FAERS Safety Report 8416291-6 (Version None)
Quarter: 2012Q2

REPORT INFORMATION
  Report Type: 
  Country: None (occurrence: None)
  Receive Date: 20120606
  Receipt Date: 20120601
  Transmission Date: 20120825
  Serious: Yes (Hospitalization)
  Sender: FDA-Public Use
  Company Number: BW-GILEAD-2012-0055811

PATIENT
  Sex: Female

DRUGS (4)
  1. EFAVIRENZ [Suspect]
     Indication: PROPHYLAXIS AGAINST HIV INFECTION
     Dosage: 600 MG, UNK
     Route: 048
     Dates: start: 20091207
  2. EMTRICITABINE/TENOFOVIR DISOPROXIL FUMARATE [Suspect]
     Indication: PROPHYLAXIS AGAINST HIV INFECTION
     Dosage: UNK UNK, QD
     Route: 048
     Dates: start: 20091207
  3. FERROUS FUMARATE [Concomitant]
     Dosage: UNK
     Dates: start: 20120201
  4. FOLIC ACID [Concomitant]
     Dosage: UNK
     Dates: start: 20120201

REACTIONS (1)
  - ANAEMIA [None]
